FAERS Safety Report 9830021 (Version 2)
Quarter: 2014Q1

REPORT INFORMATION
  Report Type: Spontaneous
  Country: DE (occurrence: DE)
  Receive Date: 20140120
  Receipt Date: 20140120
  Transmission Date: 20141002
  Serious: Yes (Hospitalization)
  Sender: FDA-Public Use
  Company Number: DE-ABBVIE-13P-062-1141407-00

PATIENT
  Sex: Male

DRUGS (6)
  1. HUMIRA [Suspect]
     Indication: PSORIASIS
     Route: 058
     Dates: start: 20110915, end: 201210
  2. ASS [Concomitant]
  3. PANTOZOL [Concomitant]
  4. CALCIGEN D [Concomitant]
  5. LISINOPRIL [Concomitant]
  6. ENOXAPRIN [Concomitant]

REACTIONS (2)
  - Cerebral infarction [Recovered/Resolved]
  - Vasculitis cerebral [Recovered/Resolved]
